FAERS Safety Report 6812586-8 (Version None)
Quarter: 2010Q3

REPORT INFORMATION
  Report Type: 
  Country: None (occurrence: None)
  Receive Date: 20100701
  Receipt Date: 20100621
  Transmission Date: 20110219
  Serious: Yes (Other)
  Sender: FDA-Public Use
  Company Number: BR-PFIZER INC-2009308783

PATIENT
  Age: 31 Year
  Sex: Female
  Weight: 135 kg

DRUGS (11)
  1. GEODON [Suspect]
     Indication: SCHIZOPHRENIA
     Dosage: 80 MG, 1X/DAY
     Route: 048
     Dates: start: 20080101
  2. GEODON [Suspect]
     Dosage: 120MG (1 CAPSULE OF 80 MG PLUS 1 CAPSULE OF 40 MG), DAILY
     Route: 048
  3. FLUOXETINE [Concomitant]
     Indication: DEPRESSION
     Dosage: 20 MG, UNK
  4. FLUOXETINE [Concomitant]
     Dosage: UNK
     Dates: start: 20090101
  5. DIAZEPAM [Concomitant]
     Indication: INSOMNIA
     Dosage: 2 MG, UNK
     Dates: start: 20100301
  6. CLONAZEPAM [Concomitant]
     Dosage: UNK
     Dates: start: 20100101, end: 20100101
  7. SERTRALINE [Concomitant]
     Dosage: UNK
  8. LEVOMEPROMAZINE HYDROCHLORIDE [Concomitant]
     Dosage: UNK
  9. CHLORPROMAZINE [Concomitant]
     Dosage: UNK
  10. PROMETHAZINE [Concomitant]
     Dosage: UNK
  11. NEULEPTIL [Concomitant]
     Dosage: UNK

REACTIONS (10)
  - AMENORRHOEA [None]
  - DEPRESSED MOOD [None]
  - DRUG DEPENDENCE [None]
  - FEELING ABNORMAL [None]
  - HYPERTENSION [None]
  - INCREASED APPETITE [None]
  - INFERTILITY FEMALE [None]
  - INSOMNIA [None]
  - NERVOUSNESS [None]
  - WEIGHT INCREASED [None]
